FAERS Safety Report 5561177-8 (Version None)
Quarter: 2007Q4

REPORT INFORMATION
  Report Type: 
  Country: None (occurrence: None)
  Receive Date: 20071215
  Receipt Date: 20071030
  Transmission Date: 20080405
  Serious: No
  Sender: FDA-Public Use
  Company Number: US-AMGEN-KDL246476

PATIENT
  Sex: Female

DRUGS (1)
  1. ENBREL [Suspect]
     Indication: RHEUMATOID ARTHRITIS
     Route: 058
     Dates: start: 20021001, end: 20071018

REACTIONS (17)
  - ABDOMINAL PAIN UPPER [None]
  - ASTHENIA [None]
  - BONE DENSITY DECREASED [None]
  - CATARACT OPERATION [None]
  - DIZZINESS [None]
  - DRY EYE [None]
  - EYE INFECTION [None]
  - FATIGUE [None]
  - INJECTION SITE ERYTHEMA [None]
  - INTRAOCULAR PRESSURE INCREASED [None]
  - LACRIMATION INCREASED [None]
  - LUNG INFECTION [None]
  - NASAL CONGESTION [None]
  - ORAL HERPES [None]
  - PARAESTHESIA [None]
  - STOMATITIS [None]
  - VISION BLURRED [None]
